FAERS Safety Report 24020270 (Version 1)
Quarter: 2024Q2

REPORT INFORMATION
  Report Type: Spontaneous
  Country: US (occurrence: US)
  Receive Date: 20240627
  Receipt Date: 20240627
  Transmission Date: 20240715
  Serious: Yes (Death)
  Sender: FDA-Public Use
  Company Number: US-AMGEN-USASP2024124024

PATIENT
  Age: 31 Year
  Sex: Male

DRUGS (7)
  1. RITUXIMAB [Suspect]
     Active Substance: RITUXIMAB
     Indication: Chronic active Epstein-Barr virus infection
     Dosage: UNK
     Route: 065
  2. PREDNISONE [Suspect]
     Active Substance: PREDNISONE
     Indication: Chronic active Epstein-Barr virus infection
     Dosage: UNK
     Route: 065
  3. DEXAMETHASONE [Concomitant]
     Active Substance: DEXAMETHASONE
     Indication: Chronic active Epstein-Barr virus infection
     Dosage: 10 MILLIGRAM/SQ. METER
     Route: 065
  4. ETOPOSIDE [Concomitant]
     Active Substance: ETOPOSIDE
     Indication: Chronic active Epstein-Barr virus infection
     Dosage: 200 MICROGRAM/SQ. METER
     Route: 065
  5. CYCLOPHOSPHAMIDE [Concomitant]
     Active Substance: CYCLOPHOSPHAMIDE
     Indication: Chronic active Epstein-Barr virus infection
     Dosage: UNK
     Route: 065
  6. DOXORUBICIN [Concomitant]
     Active Substance: DOXORUBICIN
     Indication: Chronic active Epstein-Barr virus infection
     Dosage: UNK
     Route: 065
  7. VINCRISTINE [Concomitant]
     Active Substance: VINCRISTINE
     Indication: Chronic active Epstein-Barr virus infection
     Dosage: UNK
     Route: 065

REACTIONS (2)
  - Complications of transplant surgery [Fatal]
  - Off label use [Unknown]
